FAERS Safety Report 16704467 (Version 2)
Quarter: 2019Q3

REPORT INFORMATION
  Report Type: Spontaneous
  Country: GB (occurrence: GB)
  Receive Date: 20190814
  Receipt Date: 20190826
  Transmission Date: 20191004
  Serious: Yes (Other)
  Sender: FDA-Public Use
  Company Number: GB-ALLERGAN-1933075US

PATIENT
  Sex: Female
  Weight: 71.66 kg

DRUGS (1)
  1. EXOCIN [Suspect]
     Active Substance: OFLOXACIN
     Indication: EYE ULCER
     Dosage: 1 GTT, Q2HR
     Route: 047
     Dates: start: 20190709, end: 20190715

REACTIONS (3)
  - Eye disorder [Not Recovered/Not Resolved]
  - Eye pain [Unknown]
  - Photophobia [Not Recovered/Not Resolved]

NARRATIVE: CASE EVENT DATE: 20190711
